FAERS Safety Report 5787255-6 (Version None)
Quarter: 2008Q2

REPORT INFORMATION
  Report Type: 
  Country: None (occurrence: None)
  Receive Date: 20080625
  Receipt Date: 20070925
  Transmission Date: 20081010
  Serious: No
  Sender: FDA-Public Use
  Company Number: US-ASTRAZENECA-2007UW22440

PATIENT
  Age: 76 Year
  Sex: Male
  Weight: 71.7 kg

DRUGS (4)
  1. PULMICORT RESPULES [Suspect]
     Indication: EMPHYSEMA
     Dosage: 0.5 MG/DL
     Route: 055
     Dates: end: 20070601
  2. PULMICORT RESPULES [Suspect]
     Dosage: 0.5 MG/DL
     Route: 055
     Dates: start: 20070601
  3. DUONEB [Concomitant]
  4. ASPIRIN [Concomitant]

REACTIONS (2)
  - DRY MOUTH [None]
  - HYPOAESTHESIA [None]
